FAERS Safety Report 4973831-7 (Version None)
Quarter: 2006Q2

REPORT INFORMATION
  Report Type: 
  Country: None (occurrence: None)
  Receive Date: 20060414
  Receipt Date: 20051017
  Transmission Date: 20061013
  Serious: Yes (Hospitalization)
  Sender: FDA-Public Use
  Company Number: US-MERCK-0510USA07813

PATIENT
  Age: 59 Year
  Sex: Male

DRUGS (1)
  1. VIOXX [Suspect]
     Route: 048

REACTIONS (4)
  - COLONIC POLYP [None]
  - DEEP VEIN THROMBOSIS [None]
  - OCCULT BLOOD POSITIVE [None]
  - PULMONARY EMBOLISM [None]
